FAERS Safety Report 16917297 (Version 4)
Quarter: 2020Q3

REPORT INFORMATION
  Report Type: Report from Study
  Country: None (occurrence: GR)
  Receive Date: 20191015
  Receipt Date: 20200811
  Transmission Date: 20201102
  Serious: Yes (Hospitalization, Other)
  Sender: FDA-Public Use
  Company Number: GR-ABBVIE-19K-066-2930264-00

PATIENT
  Age: 60 Year
  Sex: Male
  Weight: 100 kg

DRUGS (9)
  1. DUODOPA [Suspect]
     Active Substance: CARBIDOPA\LEVODOPA
     Dosage: MORNING DOSE: 12ML; CONTINUOUS RATE: 4.1ML/H; EXTRA DOSE: 3ML
     Route: 050
  2. MIRAPEXIN [Concomitant]
     Active Substance: PRAMIPEXOLE
     Indication: PARKINSON^S DISEASE
     Dosage: ONCE DAILY AT NIGHT
     Route: 048
  3. SINEMET [Concomitant]
     Active Substance: CARBIDOPA\LEVODOPA
     Indication: PARKINSON^S DISEASE
     Route: 048
  4. MADOPAR [Concomitant]
     Active Substance: BENSERAZIDE HYDROCHLORIDE\LEVODOPA
     Indication: PARKINSON^S DISEASE
     Dosage: (200+50)MG
     Route: 048
     Dates: start: 201809
  5. DUODOPA [Suspect]
     Active Substance: CARBIDOPA\LEVODOPA
     Indication: PARKINSON^S DISEASE
     Dosage: MORNING DOSE: 7.5ML; CONTINUOUS RATE: 5ML/H; EXTRA DOSE: 2.5ML
     Route: 050
     Dates: start: 20150531
  6. REMERON [Concomitant]
     Active Substance: MIRTAZAPINE
     Indication: DEPRESSION
     Route: 048
  7. MIRAPEXIN [Concomitant]
     Active Substance: PRAMIPEXOLE
     Dosage: ONCE DAILY IN THE MORNING
     Route: 048
  8. DUODOPA [Suspect]
     Active Substance: CARBIDOPA\LEVODOPA
     Dosage: MORNING DOSE: 12.5ML; CONTINUOUS RATE: 5.6ML/H; EXTRA DOSE:3ML
     Route: 050
     Dates: end: 201912
  9. CIPRALEX [Concomitant]
     Active Substance: ESCITALOPRAM OXALATE
     Indication: DEPRESSION
     Route: 065

REACTIONS (5)
  - Fall [Recovering/Resolving]
  - Gait inability [Recovered/Resolved]
  - Hallucination [Recovering/Resolving]
  - Oedema peripheral [Recovering/Resolving]
  - Medical device battery replacement [Unknown]

NARRATIVE: CASE EVENT DATE: 201908
